FAERS Safety Report 12093088 (Version 1)
Quarter: 2016Q1

REPORT INFORMATION
  Report Type: Spontaneous
  Country: US (occurrence: US)
  Receive Date: 20160219
  Receipt Date: 20160219
  Transmission Date: 20160526
  Serious: No
  Sender: FDA-Public Use
  Company Number: US-TEVA-567519USA

PATIENT
  Age: 19 Year
  Sex: Female

DRUGS (1)
  1. AMPHETAMINE W/DEXTROAMPHETAMINE [Suspect]
     Active Substance: AMPHETAMINE SULFATE\DEXTROAMPHETAMINE
     Indication: ATTENTION DEFICIT/HYPERACTIVITY DISORDER
     Dates: start: 201410, end: 20150529

REACTIONS (4)
  - Drug ineffective [Recovered/Resolved]
  - Product physical issue [Unknown]
  - Disturbance in attention [Unknown]
  - Fatigue [Unknown]

NARRATIVE: CASE EVENT DATE: 20150528
